FAERS Safety Report 10085395 (Version 4)
Quarter: 2014Q2

REPORT INFORMATION
  Report Type: Spontaneous
  Country: GB (occurrence: GB)
  Receive Date: 20140418
  Receipt Date: 20140515
  Transmission Date: 20141212
  Serious: Yes (Other)
  Sender: FDA-Public Use
  Company Number: GB-AMGEN-GBRSP2014008266

PATIENT
  Age: 63 Year
  Sex: Female
  Weight: 82 kg

DRUGS (3)
  1. PROLIA [Suspect]
     Indication: OSTEOPOROSIS
     Dosage: 60 MG, Q6MO
     Route: 058
     Dates: start: 201010, end: 20131020
  2. CALCIUM CARBONATE [Concomitant]
     Indication: OSTEOPOROSIS
     Dosage: 1.5 G, BID
     Route: 048
     Dates: start: 2009
  3. COLECALCIFEROL [Concomitant]
     Indication: OSTEOPOROSIS
     Dosage: 400 IU, BID
     Route: 048
     Dates: start: 2009

REACTIONS (22)
  - Cataract [Recovered/Resolved]
  - Lower respiratory tract infection [Recovered/Resolved]
  - Hyperparathyroidism [Unknown]
  - Headache [Recovering/Resolving]
  - Muscle spasms [Recovered/Resolved]
  - Change of bowel habit [Not Recovered/Not Resolved]
  - Dyspnoea [Recovering/Resolving]
  - Renal disorder [Unknown]
  - Chest discomfort [Unknown]
  - Abdominal pain upper [Recovering/Resolving]
  - Pruritus [Not Recovered/Not Resolved]
  - Insomnia [Recovering/Resolving]
  - Arthralgia [Recovered/Resolved]
  - Blood calcium increased [Unknown]
  - Renal pain [Unknown]
  - Breast pain [Not Recovered/Not Resolved]
  - Pharyngeal erythema [Recovered/Resolved]
  - Rhinorrhoea [Recovered/Resolved]
  - Blood pressure abnormal [Recovered/Resolved]
  - Anxiety [Recovered/Resolved]
  - Chest pain [Unknown]
  - Pain in extremity [Recovering/Resolving]
